FAERS Safety Report 23650966 (Version 3)
Quarter: 2024Q1

REPORT INFORMATION
  Report Type: Spontaneous
  Country: CN (occurrence: CN)
  Receive Date: 20240320
  Receipt Date: 20240325
  Transmission Date: 20240409
  Serious: Yes (Other)
  Sender: FDA-Public Use
  Company Number: CN-JNJFOC-20240340730

PATIENT
  Age: 1 Decade

DRUGS (1)
  1. IBUPROFEN [Suspect]
     Active Substance: IBUPROFEN
     Indication: Analgesic therapy
     Dosage: 30 MG/KG
     Route: 048

REACTIONS (11)
  - Respiratory depression [Unknown]
  - Off label use [Unknown]
  - Hypoxia [Unknown]
  - Hypotension [Unknown]
  - Cough [Unknown]
  - Heart rate increased [Unknown]
  - Mean arterial pressure increased [Unknown]
  - Oxygen saturation decreased [Unknown]
  - Drug ineffective [Unknown]
  - Nausea [Unknown]
  - Vomiting [Unknown]
